FAERS Safety Report 8681116 (Version 2)
Quarter: 2013Q4

REPORT INFORMATION
  Report Type: Spontaneous
  Country: CH (occurrence: CH)
  Receive Date: 20120725
  Receipt Date: 20131031
  Transmission Date: 20140711
  Serious: Yes (Life-Threatening, Hospitalization, Other)
  Sender: FDA-Public Use
  Company Number: CH-009507513-1207CHE007059

PATIENT
  Age: 73 Year
  Sex: Male

DRUGS (13)
  1. REMERON [Suspect]
     Indication: BIPOLAR DISORDER
     Dosage: 30 MG, QD
     Route: 048
     Dates: start: 201204
  2. PLAVIX [Suspect]
     Indication: CEREBRAL INFARCTION
     Dosage: 75 MG, QD
     Route: 048
     Dates: start: 20110426, end: 20120511
  3. ASPIRIN CARDIO [Suspect]
     Indication: CEREBRAL INFARCTION
     Dosage: 100 MG, QD
     Route: 048
     Dates: start: 20110416
  4. CIPRALEX [Suspect]
     Indication: BIPOLAR DISORDER
     Dosage: 10 MG, QD
     Route: 048
     Dates: start: 201104
  5. GLUCOPHAGE [Suspect]
     Indication: TYPE 2 DIABETES MELLITUS
     Dosage: 850 MG, QD
     Dates: start: 2011, end: 201205
  6. FLECTOR [Suspect]
     Dosage: 1 DF, UNK
     Route: 003
     Dates: end: 201205
  7. CONCOR [Concomitant]
     Dosage: 10 MG, QD
     Route: 048
     Dates: end: 201205
  8. TRIATEC COMP [Concomitant]
     Dosage: 2.5/12.5MG, QD
     Route: 048
     Dates: end: 201205
  9. SORTIS [Concomitant]
     Dosage: 40 MG, QD
     Route: 048
  10. SEROQUEL [Concomitant]
     Dosage: 25 MG, QD
  11. LANTUS [Concomitant]
     Dosage: 4 IU
     Route: 058
  12. PRADIF [Concomitant]
     Dosage: 400 MICROGRAM, QD
  13. HALDOL [Concomitant]
     Dosage: UNK, PRN
     Route: 048

REACTIONS (5)
  - Lower gastrointestinal haemorrhage [Recovered/Resolved]
  - Melaena [Recovered/Resolved]
  - Haemorrhagic anaemia [Recovering/Resolving]
  - Renal failure acute [Recovered/Resolved]
  - Hypotonia [Recovered/Resolved]
